FAERS Safety Report 20977516 (Version 2)
Quarter: 2025Q3

REPORT INFORMATION
  Report Type: Spontaneous
  Country: EU (occurrence: EU)
  Receive Date: 20220618
  Receipt Date: 20250823
  Transmission Date: 20251021
  Serious: Yes (Hospitalization, Disabling, Other)
  Sender: AUROBINDO
  Company Number: EU-002147023-NVSC2022PL124873

PATIENT
  Age: 17 Year
  Sex: Female

DRUGS (11)
  1. FLUCONAZOLE [Suspect]
     Active Substance: FLUCONAZOLE
     Indication: Ulcerative keratitis
     Dosage: ONCE A DAY (QID)
     Route: 065
  2. DIBROMPROPAMIDINE ISETHIONATE [Suspect]
     Active Substance: DIBROMPROPAMIDINE ISETHIONATE
     Indication: Ulcerative keratitis
     Dosage: ONCE A DAY
     Route: 065
  3. TROPICAMIDE [Suspect]
     Active Substance: TROPICAMIDE
     Indication: Ulcerative keratitis
     Dosage: ONCE A DAY (UNK UNK, TID)
     Route: 065
  4. ACYCLOVIR [Suspect]
     Active Substance: ACYCLOVIR
     Indication: Ulcerative keratitis
     Route: 065
  5. LOTEMAX [Suspect]
     Active Substance: LOTEPREDNOL ETABONATE
     Indication: Ulcerative keratitis
     Dosage: ONCE A DAY (BID)
     Route: 065
  6. GANCICLOVIR [Suspect]
     Active Substance: GANCICLOVIR
     Indication: Ulcerative keratitis
     Dosage: ONCE A DAY
     Route: 065
  7. VIGAMOX [Suspect]
     Active Substance: MOXIFLOXACIN HYDROCHLORIDE
     Indication: Ulcerative keratitis
     Dosage: ONCE A DAY
     Route: 065
  8. VORICONAZOLE [Suspect]
     Active Substance: VORICONAZOLE
     Indication: Product used for unknown indication
     Route: 065
  9. DEXAMETHASONE [Concomitant]
     Active Substance: DEXAMETHASONE
     Indication: Product used for unknown indication
     Route: 065
  10. FLOXAL [Concomitant]
     Active Substance: OFLOXACIN
     Indication: Product used for unknown indication
     Route: 065
  11. LEVOFLOXACIN [Concomitant]
     Active Substance: LEVOFLOXACIN
     Indication: Product used for unknown indication
     Route: 065

REACTIONS (7)
  - Transplant rejection [Unknown]
  - Endophthalmitis [Recovered/Resolved with Sequelae]
  - Drug ineffective [Unknown]
  - Iridocyclitis [Unknown]
  - Keratitis [Unknown]
  - Neurotrophic keratopathy [Unknown]
  - Product use in unapproved indication [Unknown]
